FAERS Safety Report 4963083-6 (Version None)
Quarter: 2006Q2

REPORT INFORMATION
  Report Type: 
  Country: None (occurrence: None)
  Receive Date: 20060405
  Receipt Date: 20060221
  Transmission Date: 20061013
  Serious: Yes (Hospitalization)
  Sender: FDA-Public Use
  Company Number: JP-JPN-A200600704

PATIENT
  Age: 91 Year
  Sex: Female
  Weight: 39 kg

DRUGS (10)
  1. VALTREX [Suspect]
     Indication: HERPES ZOSTER
     Dosage: 4500MG PER DAY
     Route: 048
     Dates: start: 20060217, end: 20060217
  2. VALTREX [Suspect]
     Dosage: 1000MG THREE TIMES PER DAY
     Route: 048
     Dates: start: 20060218, end: 20060218
  3. ZOVIRAX [Concomitant]
     Indication: HERPES ZOSTER
     Dosage: 250MG PER DAY
     Route: 042
     Dates: start: 20060217, end: 20060217
  4. BUFFERIN [Concomitant]
     Route: 048
  5. TANATRIL [Concomitant]
     Route: 048
  6. CYANOCOBALAMIN [Concomitant]
     Indication: HERPES ZOSTER
     Dosage: 1.5MG PER DAY
     Route: 048
     Dates: start: 20060217, end: 20060217
  7. AMLODIN [Concomitant]
     Route: 048
  8. DIOVAN [Concomitant]
     Indication: HYPERTENSION
     Dosage: 80MG PER DAY
     Route: 048
     Dates: end: 20060219
  9. GASTER D [Concomitant]
     Indication: GASTRIC ULCER
     Dosage: 5MG PER DAY
     Route: 048
     Dates: end: 20060219
  10. VASOLAN [Concomitant]
     Indication: SUPRAVENTRICULAR EXTRASYSTOLES
     Dosage: 120MG PER DAY
     Route: 048
     Dates: end: 20060219

REACTIONS (8)
  - ACCIDENTAL OVERDOSE [None]
  - BLOOD CREATININE INCREASED [None]
  - CONFUSIONAL STATE [None]
  - DIZZINESS [None]
  - DYSARTHRIA [None]
  - ENCEPHALOPATHY [None]
  - GAIT DISTURBANCE [None]
  - RENAL FAILURE ACUTE [None]
